FAERS Safety Report 16354747 (Version 6)
Quarter: 2019Q3

REPORT INFORMATION
  Report Type: Spontaneous
  Country: AT (occurrence: AT)
  Receive Date: 20190524
  Receipt Date: 20190724
  Transmission Date: 20191004
  Serious: Yes (Hospitalization, Other)
  Sender: FDA-Public Use
  Company Number: AT-ELI_LILLY_AND_COMPANY-AT201905010012

PATIENT
  Age: 53 Year
  Sex: Female
  Weight: 53 kg

DRUGS (31)
  1. GABAPENTIN. [Suspect]
     Active Substance: GABAPENTIN
     Dosage: 300 MG, DAILY
     Route: 048
     Dates: start: 20190502
  2. DEXAMETHASONE. [Suspect]
     Active Substance: DEXAMETHASONE
     Dosage: 4 MG, DAILY
     Route: 048
     Dates: start: 20190426, end: 20190502
  3. HYDAL [Suspect]
     Active Substance: HYDROMORPHONE HYDROCHLORIDE
     Dosage: 6 MG, DAILY
     Route: 048
     Dates: start: 20190410, end: 20190424
  4. PRAXITEN [Suspect]
     Active Substance: OXAZEPAM
     Dosage: 1.05 WHEN NEEDED
     Route: 048
     Dates: start: 20190410, end: 20190417
  5. ZYPREXA [Suspect]
     Active Substance: OLANZAPINE
     Indication: MANIA
     Dosage: 5 MG, DAILY
     Route: 048
     Dates: start: 20190410, end: 20190424
  6. METOCLOPRAMIDE HYDROCHLORIDE. [Suspect]
     Active Substance: METOCLOPRAMIDE HYDROCHLORIDE
     Indication: NAUSEA
     Dosage: 10 MG, UNKNOWN
     Route: 048
     Dates: end: 20190409
  7. HYDAL [Suspect]
     Active Substance: HYDROMORPHONE HYDROCHLORIDE
     Dosage: 2 MG, DAILY
     Route: 048
     Dates: start: 20190425
  8. VEMURAFENIB. [Suspect]
     Active Substance: VEMURAFENIB
     Indication: METASTATIC MALIGNANT MELANOMA
     Dosage: 240 MG, 4-0-4
     Route: 048
     Dates: start: 20190327
  9. METOCLOPRAMIDE HYDROCHLORIDE. [Suspect]
     Active Substance: METOCLOPRAMIDE HYDROCHLORIDE
     Indication: VOMITING
     Dosage: 30 MG, DAILY
     Route: 048
     Dates: start: 20190410, end: 20190424
  10. COBIMETINIB. [Suspect]
     Active Substance: COBIMETINIB
     Dosage: 20 MG, 3-0-0
     Route: 048
     Dates: start: 20190407, end: 20190423
  11. PRAXITEN [Suspect]
     Active Substance: OXAZEPAM
     Indication: INSOMNIA
     Dosage: 0.5 DOSAGE FORM, PRN
     Route: 048
  12. DEXAMETHASONE. [Suspect]
     Active Substance: DEXAMETHASONE
     Dosage: 4 MG, DAILY
     Route: 048
     Dates: start: 20190503, end: 20190504
  13. ONDANSETRON [Suspect]
     Active Substance: ONDANSETRON
     Indication: NAUSEA
     Dosage: UNK, DAILY
     Route: 048
     Dates: start: 20190409, end: 20190409
  14. VEMURAFENIB. [Suspect]
     Active Substance: VEMURAFENIB
     Dosage: 240 MG, 4-0-4
     Route: 048
     Dates: start: 20190407
  15. PRAXITEN [Suspect]
     Active Substance: OXAZEPAM
     Indication: ANXIETY
     Dosage: 15 MG, DAILY (00-1/2)
     Route: 048
     Dates: start: 20190410, end: 20190417
  16. DRONABINOL. [Suspect]
     Active Substance: DRONABINOL
     Dosage: 10 [DRP], BID, 3-3-4
     Route: 048
     Dates: start: 20190410, end: 20190410
  17. COBIMETINIB. [Suspect]
     Active Substance: COBIMETINIB
     Indication: METASTATIC MALIGNANT MELANOMA
     Dosage: 20 MG, 3-0-0
     Route: 048
     Dates: start: 20190327
  18. COBIMETINIB. [Suspect]
     Active Substance: COBIMETINIB
     Dosage: 20 MG, 2-0-0
     Route: 048
     Dates: start: 20190607
  19. DEXAMETHASONE. [Suspect]
     Active Substance: DEXAMETHASONE
     Indication: PROPHYLAXIS
     Dosage: 8 MG, DAILY
     Route: 048
     Dates: start: 20190408, end: 20190425
  20. HYDAL [Suspect]
     Active Substance: HYDROMORPHONE HYDROCHLORIDE
     Dosage: 1.3 MG, PRN, UP TO 6X/DAY
     Route: 048
     Dates: end: 20190424
  21. VEMURAFENIB. [Suspect]
     Active Substance: VEMURAFENIB
     Dosage: 240 MG, 3-0-3
     Route: 048
     Dates: start: 20190607
  22. VEMURAFENIB. [Suspect]
     Active Substance: VEMURAFENIB
     Dosage: 240 MG, 3-0-3
     Route: 048
     Dates: start: 20190425, end: 20190526
  23. METOCLOPRAMIDE HYDROCHLORIDE. [Suspect]
     Active Substance: METOCLOPRAMIDE HYDROCHLORIDE
     Dosage: 20 MG, DAILY
     Route: 048
     Dates: start: 20190425, end: 20190502
  24. GABAPENTIN. [Suspect]
     Active Substance: GABAPENTIN
     Indication: PAIN
     Dosage: 900 MG, DAILY
     Route: 048
     Dates: start: 20190501
  25. DUROTIV [Suspect]
     Active Substance: ESOMEPRAZOLE
     Indication: PRODUCT USED FOR UNKNOWN INDICATION
     Dosage: 40 MG, DAILY
     Route: 048
     Dates: start: 20190410
  26. HYDAL [Suspect]
     Active Substance: HYDROMORPHONE HYDROCHLORIDE
     Indication: PAIN
     Dosage: 2 MG, UNKNOWN
     Route: 048
     Dates: start: 20190327, end: 20190409
  27. CALCIDURAN [Suspect]
     Active Substance: ASCORBIC ACID\CALCIUM PHOSPHATE\CHOLECALCIFEROL\CITRIC ACID MONOHYDRATE
     Indication: PRODUCT USED FOR UNKNOWN INDICATION
     Dosage: 500 MG, DAILY
     Route: 048
     Dates: start: 201905, end: 201905
  28. DIMENHYDRINATE. [Suspect]
     Active Substance: DIMENHYDRINATE
     Indication: NAUSEA
     Dosage: 150 MG, 1-1-1
     Route: 048
     Dates: start: 20190424
  29. DRONABINOL. [Suspect]
     Active Substance: DRONABINOL
     Indication: PAIN
     Dosage: UNK, BID
     Route: 048
     Dates: start: 20190409, end: 20190409
  30. MOLAXOLE [Suspect]
     Active Substance: POLYETHYLENE GLYCOL 3350\POTASSIUM CHLORIDE\SODIUM BICARBONATE\SODIUM CHLORIDE
     Indication: CONSTIPATION
     Dosage: UNK UNK, UNKNOWN
     Route: 048
  31. ATORVASTATIN [Concomitant]
     Active Substance: ATORVASTATIN
     Indication: HYPERLIPIDAEMIA
     Dosage: 40 MG, 0-0-1
     Route: 048
     Dates: start: 20190528

REACTIONS (33)
  - Vertigo [Recovered/Resolved]
  - Renal function test abnormal [Recovering/Resolving]
  - Liver function test abnormal [Recovering/Resolving]
  - Defaecation disorder [Recovered/Resolved]
  - Decreased appetite [Recovered/Resolved]
  - Anxiety [Recovered/Resolved]
  - Nausea [Recovered/Resolved]
  - Fatigue [Recovered/Resolved]
  - Hypertensive crisis [Recovered/Resolved]
  - Abdominal pain upper [Recovered/Resolved]
  - Oedema [Recovering/Resolving]
  - Headache [Recovered/Resolved]
  - Discomfort [Recovered/Resolved]
  - Flatulence [Recovered/Resolved]
  - Abdominal pain upper [Recovered/Resolved]
  - Vomiting [Recovered/Resolved]
  - Dry mouth [Recovered/Resolved]
  - Vomiting [Recovered/Resolved]
  - Laboratory test abnormal [Recovering/Resolving]
  - Hyperlipidaemia [Recovering/Resolving]
  - Nodule [Recovering/Resolving]
  - Anxiety [Recovered/Resolved]
  - Skin discolouration [Not Recovered/Not Resolved]
  - Constipation [Recovered/Resolved]
  - Feeling hot [Recovered/Resolved]
  - Headache [Recovered/Resolved]
  - Spinal pain [Recovered/Resolved]
  - Diarrhoea [Recovered/Resolved]
  - Alopecia [Recovering/Resolving]
  - Hypertonia [Not Recovered/Not Resolved]
  - General physical health deterioration [Recovered/Resolved]
  - Hypokalaemia [Recovered/Resolved]
  - Rash [Recovered/Resolved]

NARRATIVE: CASE EVENT DATE: 20190327
